FAERS Safety Report 9905394 (Version 2)
Quarter: 2014Q1

REPORT INFORMATION
  Report Type: Report from Study
  Country: PT (occurrence: PT)
  Receive Date: 20140218
  Receipt Date: 20140303
  Transmission Date: 20141002
  Serious: Yes (Death)
  Sender: FDA-Public Use
  Company Number: PT-ACTELION-A-CH2014-94842

PATIENT
  Age: 5 Year
  Sex: Male
  Weight: 10.7 kg

DRUGS (1)
  1. ZAVESCA [Suspect]
     Indication: NIEMANN-PICK DISEASE
     Dosage: 100 MG, QD
     Route: 048
     Dates: start: 20101213

REACTIONS (3)
  - Cardiopulmonary failure [Fatal]
  - Niemann-Pick disease [Fatal]
  - Disease progression [Fatal]
